FAERS Safety Report 14317031 (Version 3)
Quarter: 2018Q3

REPORT INFORMATION
  Report Type: Spontaneous
  Country: DE (occurrence: DE)
  Receive Date: 20171222
  Receipt Date: 20180917
  Transmission Date: 20181010
  Serious: Yes (Other)
  Sender: FDA-Public Use
  Company Number: PHHY2017DE188794

PATIENT
  Sex: Female

DRUGS (2)
  1. METHADONE [Concomitant]
     Active Substance: METHADONE HYDROCHLORIDE
     Indication: PRODUCT USED FOR UNKNOWN INDICATION
     Route: 065
  2. KISQALI [Suspect]
     Active Substance: RIBOCICLIB
     Indication: PRODUCT USED FOR UNKNOWN INDICATION
     Dosage: 3 DF, QD
     Route: 065
     Dates: start: 201711

REACTIONS (7)
  - Vomiting [Unknown]
  - Platelet count decreased [Unknown]
  - Alopecia [Unknown]
  - Faeces discoloured [Unknown]
  - White blood cell count decreased [Unknown]
  - Gastric infection [Recovered/Resolved]
  - Gingival recession [Unknown]

NARRATIVE: CASE EVENT DATE: 20171212
